FAERS Safety Report 7331729-3 (Version None)
Quarter: 2011Q1

REPORT INFORMATION
  Report Type: 
  Country: None (occurrence: None)
  Receive Date: 20110228
  Receipt Date: 20110228
  Transmission Date: 20110831
  Serious: Yes (Disabling)
  Sender: FDA-Public Use
  Company Number: None

PATIENT
  Age: 63 Year
  Sex: Female
  Weight: 86.1834 kg

DRUGS (1)
  1. GENTAMICIN [Suspect]
     Indication: INFECTION
     Dosage: 350 MG DAILY 30 DAYS  400MG DAILY 4 DAYS
     Dates: start: 20100619, end: 20100803

REACTIONS (8)
  - EAR INJURY [None]
  - VISUAL IMPAIRMENT [None]
  - VISION BLURRED [None]
  - EAR PAIN [None]
  - GAIT DISTURBANCE [None]
  - PRODUCT QUALITY ISSUE [None]
  - CONFUSIONAL STATE [None]
  - HEADACHE [None]
